FAERS Safety Report 22148716 (Version 4)
Quarter: 2023Q2

REPORT INFORMATION
  Report Type: Spontaneous
  Country: US (occurrence: US)
  Receive Date: 20230328
  Receipt Date: 20230512
  Transmission Date: 20230722
  Serious: No
  Sender: FDA-Public Use
  Company Number: US-PFIZER INC-2021850525

PATIENT
  Age: 66 Year
  Sex: Female

DRUGS (3)
  1. RETACRIT [Suspect]
     Active Substance: EPOETIN ALFA-EPBX
     Indication: Anaemia
     Dosage: 20000 IU, MONTHLY (EVERY MONTHLY)
     Route: 058
  2. RETACRIT [Suspect]
     Active Substance: EPOETIN ALFA-EPBX
     Indication: Neoplasm malignant
     Dosage: 10000 IU, MONTHLY
  3. RETACRIT [Suspect]
     Active Substance: EPOETIN ALFA-EPBX
     Dosage: Q 30 DAYS

REACTIONS (3)
  - COVID-19 [Unknown]
  - Illness [Unknown]
  - Off label use [Unknown]
